FAERS Safety Report 7753070-7 (Version None)
Quarter: 2011Q3

REPORT INFORMATION
  Report Type: 
  Country: None (occurrence: None)
  Receive Date: 20110913
  Receipt Date: 20110830
  Transmission Date: 20111222
  Serious: Yes (Other)
  Sender: FDA-Public Use
  Company Number: 2011MA012746

PATIENT
  Age: 26 Year
  Sex: Male

DRUGS (2)
  1. ZOLPIDEM TARTRATE [Suspect]
     Indication: ANXIETY
     Dosage: 400 MG; QD; UNK
  2. ZOLPIDEM TARTRATE [Suspect]
     Indication: ADJUSTMENT DISORDER
     Dosage: 400 MG; QD; UNK

REACTIONS (13)
  - SUICIDE ATTEMPT [None]
  - CONFUSIONAL STATE [None]
  - ANXIETY [None]
  - REFUSAL OF TREATMENT BY PATIENT [None]
  - RESTLESSNESS [None]
  - INSOMNIA [None]
  - SINUS TACHYCARDIA [None]
  - DRUG WITHDRAWAL SYNDROME [None]
  - DELIRIUM [None]
  - AGITATION [None]
  - CHEST DISCOMFORT [None]
  - REFUSAL OF TREATMENT BY RELATIVE [None]
  - PERSONALITY DISORDER [None]
